FAERS Safety Report 7635997-X (Version None)
Quarter: 2011Q3

REPORT INFORMATION
  Report Type: 
  Country: None (occurrence: None)
  Receive Date: 20110726
  Receipt Date: 20110713
  Transmission Date: 20111222
  Serious: Yes (Other)
  Sender: FDA-Public Use
  Company Number: US-ROCHE-770131

PATIENT
  Sex: Male
  Weight: 90.7 kg

DRUGS (1)
  1. ACCUTANE [Suspect]
     Route: 065
     Dates: start: 19960401, end: 19970401

REACTIONS (6)
  - IRRITABLE BOWEL SYNDROME [None]
  - INTESTINAL HAEMORRHAGE [None]
  - INFLAMMATORY BOWEL DISEASE [None]
  - CROHN'S DISEASE [None]
  - ARTHRITIS [None]
  - COLITIS ULCERATIVE [None]
